FAERS Safety Report 12237806 (Version 4)
Quarter: 2016Q2

REPORT INFORMATION
  Report Type: Report from Study
  Country: CA (occurrence: CA)
  Receive Date: 20160405
  Receipt Date: 20160629
  Transmission Date: 20160815
  Serious: Yes (Life-Threatening)
  Sender: FDA-Public Use
  Company Number: PHHO2016CA004940

PATIENT
  Age: 58 Year
  Sex: Male
  Weight: 103 kg

DRUGS (2)
  1. LITHIUM. [Concomitant]
     Active Substance: LITHIUM
     Indication: BIPOLAR DISORDER
     Dosage: 1200 MG, UNK
     Route: 065
     Dates: start: 19880316
  2. AIN457 [Suspect]
     Active Substance: SECUKINUMAB
     Indication: PSORIASIS
     Dosage: 300 MG, QMO (QMOS)
     Route: 058
     Dates: start: 20121015, end: 20160229

REACTIONS (1)
  - Dysplastic naevus [Recovered/Resolved]

NARRATIVE: CASE EVENT DATE: 20160105
